FAERS Safety Report 9344718 (Version 2)
Quarter: 2013Q3

REPORT INFORMATION
  Report Type: Spontaneous
  Country: IT (occurrence: IT)
  Receive Date: 20130612
  Receipt Date: 20130704
  Transmission Date: 20140515
  Serious: No
  Sender: FDA-Public Use
  Company Number: IT-PFIZER INC-2013173340

PATIENT
  Age: 10 Month
  Sex: Male

DRUGS (8)
  1. ZYVOXID [Suspect]
     Dosage: UNK
     Route: 042
     Dates: start: 20130408, end: 20130428
  2. ZYVOXID [Suspect]
     Dosage: UNK
     Route: 042
     Dates: start: 20130502, end: 20130521
  3. KEPPRA [Concomitant]
  4. LIMPIDEX [Concomitant]
  5. SABRIL [Concomitant]
  6. MYCOSTATIN [Concomitant]
  7. DIFLUCAN [Concomitant]
  8. PERIDON [Concomitant]

REACTIONS (1)
  - Electrocardiogram T wave amplitude increased [Recovered/Resolved]
